FAERS Safety Report 23705256 (Version 1)
Quarter: 2024Q2

REPORT INFORMATION
  Report Type: Spontaneous
  Country: CN (occurrence: CN)
  Receive Date: 20240404
  Receipt Date: 20240404
  Transmission Date: 20240715
  Serious: Yes (Other)
  Sender: FDA-Public Use
  Company Number: CN-QILU PHARMACEUTICAL (HAINAN) CO.  LTD.-QLH-000059-2024

PATIENT
  Sex: Male

DRUGS (4)
  1. OXALIPLATIN [Suspect]
     Active Substance: OXALIPLATIN
     Indication: Colorectal cancer
     Dosage: 6 CYCLES, 150 MG ON DAY 1, EVERY TWO WEEKS AS A PART OF MFOLFOX6 REGIMEN
     Route: 065
     Dates: start: 2023, end: 202303
  2. LEVOLEUCOVORIN CALCIUM [Suspect]
     Active Substance: LEVOLEUCOVORIN CALCIUM
     Indication: Colorectal cancer
     Dosage: 6 CYCLES, 300 MG ON DAY 1, EVERY TWO WEEKS AS A PART OF MFOLFOX6 REGIMEN
     Route: 065
     Dates: start: 2023, end: 202303
  3. FLUOROURACIL [Suspect]
     Active Substance: FLUOROURACIL
     Indication: Colorectal cancer
     Dosage: 6 CYCLES, 0.6 G, EVERY TWO WEEKS AS A PART OF MFOLFOX6 REGIMEN
     Route: 040
     Dates: start: 2023, end: 202303
  4. FLUOROURACIL [Suspect]
     Active Substance: FLUOROURACIL
     Dosage: 6 CYCLES, 4 G OVER 46 HOURS CONTINUOUS INFUSION EVERY TWO WEEKS AS A PART OF MFOLFOX6 REGIMEN
     Route: 065
     Dates: start: 2023, end: 202303

REACTIONS (2)
  - Pneumatosis intestinalis [Unknown]
  - Portal venous gas [Unknown]

NARRATIVE: CASE EVENT DATE: 20230301
